FAERS Safety Report 23266381 (Version 3)
Quarter: 2024Q2

REPORT INFORMATION
  Report Type: Spontaneous
  Country: JP (occurrence: JP)
  Receive Date: 20231206
  Receipt Date: 20240425
  Transmission Date: 20240716
  Serious: Yes (Other)
  Sender: FDA-Public Use
  Company Number: JP-TAKEDA-2023TUS117276

PATIENT
  Age: 6 Decade
  Sex: Male

DRUGS (24)
  1. LIALDA [Suspect]
     Active Substance: MESALAMINE
     Indication: Colitis ulcerative
     Dosage: 4800 MILLIGRAM, QD
     Route: 048
     Dates: start: 202102
  2. MIRIKIZUMAB [Suspect]
     Active Substance: MIRIKIZUMAB
     Indication: Colitis ulcerative
     Dosage: UNK
     Route: 041
     Dates: start: 20230812, end: 20240303
  3. PREDNISOLONE [Concomitant]
     Active Substance: PREDNISOLONE
     Indication: Colitis ulcerative
     Dosage: 25 MILLIGRAM, QD
     Route: 065
  4. PREDNISOLONE [Concomitant]
     Active Substance: PREDNISOLONE
     Dosage: 20 MILLIGRAM, QD
     Route: 065
  5. PREDNISOLONE [Concomitant]
     Active Substance: PREDNISOLONE
     Dosage: 15 MILLIGRAM, QD
     Route: 065
  6. PREDNISOLONE [Concomitant]
     Active Substance: PREDNISOLONE
     Dosage: 10 MILLIGRAM, QD
     Route: 065
  7. PREDNISOLONE [Concomitant]
     Active Substance: PREDNISOLONE
     Dosage: 5 MILLIGRAM, QD
     Route: 065
  8. PREDNISOLONE [Concomitant]
     Active Substance: PREDNISOLONE
     Dosage: 30 MILLIGRAM, QD
     Route: 065
  9. PREDNISOLONE [Concomitant]
     Active Substance: PREDNISOLONE
     Dosage: 25 MILLIGRAM, QD
     Route: 065
  10. PREDNISOLONE [Concomitant]
     Active Substance: PREDNISOLONE
     Dosage: 20 MILLIGRAM, QD
     Route: 065
  11. PREDNISOLONE [Concomitant]
     Active Substance: PREDNISOLONE
     Dosage: 15 MILLIGRAM, QD
     Route: 065
  12. PREDNISOLONE [Concomitant]
     Active Substance: PREDNISOLONE
     Dosage: 10 MILLIGRAM, QD
     Route: 065
  13. PREDNISOLONE [Concomitant]
     Active Substance: PREDNISOLONE
     Dosage: 5 MILLIGRAM, QD
     Route: 065
  14. PREDNISOLONE [Concomitant]
     Active Substance: PREDNISOLONE
     Dosage: 30 MILLIGRAM, QD
     Route: 065
  15. PREDNISOLONE [Concomitant]
     Active Substance: PREDNISOLONE
     Dosage: 25 MILLIGRAM, QD
     Route: 065
  16. PREDNISOLONE [Concomitant]
     Active Substance: PREDNISOLONE
     Dosage: 20 MILLIGRAM, QD
     Route: 065
  17. PREDNISOLONE [Concomitant]
     Active Substance: PREDNISOLONE
     Dosage: 15 MILLIGRAM, QD
     Route: 065
  18. PREDNISOLONE [Concomitant]
     Active Substance: PREDNISOLONE
     Dosage: 10 MILLIGRAM, QD
     Route: 065
  19. PREDNISOLONE [Concomitant]
     Active Substance: PREDNISOLONE
     Dosage: 5 MILLIGRAM, QD
     Route: 065
  20. PENTASA [Concomitant]
     Active Substance: MESALAMINE
     Indication: Colitis ulcerative
     Dosage: UNK
     Route: 054
  21. BUDESONIDE [Concomitant]
     Active Substance: BUDESONIDE
     Indication: Colitis ulcerative
     Dosage: UNK
     Route: 065
  22. USTEKINUMAB [Concomitant]
     Active Substance: USTEKINUMAB
     Indication: Colitis ulcerative
     Dosage: UNK
     Route: 065
  23. GOLIMUMAB [Concomitant]
     Active Substance: GOLIMUMAB
     Indication: Colitis ulcerative
     Dosage: UNK
     Route: 065
     Dates: start: 202207, end: 202308
  24. GOLIMUMAB [Concomitant]
     Active Substance: GOLIMUMAB
     Dosage: UNK
     Route: 065
     Dates: start: 202403, end: 202403

REACTIONS (2)
  - Colitis ulcerative [Recovered/Resolved]
  - Osteonecrosis [Unknown]

NARRATIVE: CASE EVENT DATE: 20230901
